FAERS Safety Report 17901054 (Version 1)
Quarter: 2020Q2

REPORT INFORMATION
  Report Type: Spontaneous
  Country: DE (occurrence: DE)
  Receive Date: 20200616
  Receipt Date: 20200616
  Transmission Date: 20200714
  Serious: Yes (Hospitalization)
  Sender: FDA-Public Use
  Company Number: DE-TEVA-2020-DE-1247708

PATIENT
  Age: 64 Year
  Sex: Male

DRUGS (8)
  1. DULOXETIN [Concomitant]
     Active Substance: DULOXETINE
     Dosage: 60 MILLIGRAM DAILY;  1-0-0-0
  2. NEBIVOLOL. [Concomitant]
     Active Substance: NEBIVOLOL
     Dosage: .5 DOSAGE FORMS DAILY; 5 MG, 0.5-0-0-0
  3. PREGABALIN. [Concomitant]
     Active Substance: PREGABALIN
     Dosage: 100 MILLIGRAM DAILY; 50MG, 1-0-1-0
  4. ACETYLSALICYLSAURE [Concomitant]
     Active Substance: ASPIRIN
     Dosage: 100 MILLIGRAM DAILY;  0-1-0-0
  5. SPIRONOLACTON [Suspect]
     Active Substance: SPIRONOLACTONE
     Dosage: .5 DOSAGE FORMS DAILY; 50 MG, 0-0.5-0-0
  6. CANDESARTAN. [Concomitant]
     Active Substance: CANDESARTAN
     Dosage: 32 MILLIGRAM DAILY;  1-0-0-0
  7. HCT [Suspect]
     Active Substance: HYDROCHLOROTHIAZIDE
     Dosage: 12.5 MILLIGRAM DAILY; 1-0-0-0
  8. AMLODIPIN [Concomitant]
     Active Substance: AMLODIPINE BESYLATE
     Dosage: 5 MILLIGRAM DAILY;  0-1-0-0

REACTIONS (8)
  - Inflammation [Unknown]
  - Product monitoring error [Unknown]
  - Electrolyte imbalance [Unknown]
  - Polyuria [Unknown]
  - General physical health deterioration [Unknown]
  - Cardiac failure chronic [Unknown]
  - Cough [Unknown]
  - Dyspnoea exertional [Unknown]
